FAERS Safety Report 5374765-9 (Version None)
Quarter: 2007Q2

REPORT INFORMATION
  Report Type: 
  Country: None (occurrence: None)
  Receive Date: 20070629
  Receipt Date: 20070628
  Transmission Date: 20071010
  Serious: Yes (Life-Threatening, Hospitalization)
  Sender: FDA-Public Use
  Company Number: US-BRISTOL-MYERS SQUIBB COMPANY-13268818

PATIENT
  Age: 41 Year
  Sex: Female
  Weight: 62 kg

DRUGS (11)
  1. ERBITUX [Suspect]
     Indication: NON-SMALL CELL LUNG CANCER
     Dosage: OVER ONE HOUR.
     Route: 041
     Dates: start: 20060119, end: 20060119
  2. CARBOPLATIN [Suspect]
     Indication: NON-SMALL CELL LUNG CANCER
     Dosage: OVER 30 MINUTES.
     Route: 041
     Dates: start: 20060105, end: 20060105
  3. PACLITAXEL [Suspect]
     Indication: NON-SMALL CELL LUNG CANCER
     Dosage: ADMINISTERED OVER ONE HOUR.
     Route: 041
     Dates: start: 20060119, end: 20060119
  4. ACETAMINOPHEN [Concomitant]
     Dosage: ADMINISTERED 05-JAN-2006 AND 19-JAN-2006.
     Route: 048
     Dates: start: 20060101
  5. CIMETIDINE HCL [Concomitant]
     Dosage: ADMINISTERED ON 05-JAN-2006 AND 19-JAN-2006.
     Route: 041
     Dates: start: 20060101
  6. DECADRON [Concomitant]
     Dosage: 4 MG DAILY WITH DECREASING DOSES TO TITRATE OFF.
     Dates: start: 20060107
  7. DEXAMETHASONE 0.5MG TAB [Concomitant]
     Dosage: ADMINISTERED ON 05-JAN-2006 AND 19-JAN-2006.
     Route: 042
     Dates: start: 20060101
  8. DIPHENHYDRAMINE HCL [Concomitant]
     Dosage: ADMINISTERED ON 05-JAN-2006 AND 19-JAN-2006.
     Route: 041
     Dates: start: 20060101
  9. IMODIUM [Concomitant]
     Dosage: ADMINISTERED WITH EACH LOOSE STOOL.
     Dates: start: 20060112
  10. LOMOTIL [Concomitant]
     Dates: start: 20060119
  11. LOPID [Concomitant]
     Route: 048
     Dates: start: 20020101

REACTIONS (4)
  - DEHYDRATION [None]
  - DERMATITIS ACNEIFORM [None]
  - DIARRHOEA [None]
  - FEBRILE NEUTROPENIA [None]
